FAERS Safety Report 12237135 (Version 1)
Quarter: 2016Q2

REPORT INFORMATION
  Report Type: Spontaneous
  Country: US (occurrence: None)
  Receive Date: 20160404
  Receipt Date: 20160404
  Transmission Date: 20160815
  Serious: Yes (Disabling)
  Sender: FDA-Public Use
  Company Number: None

PATIENT
  Age: 47 Year
  Sex: Female
  Weight: 107.05 kg

DRUGS (12)
  1. FLUXAMINE MALEATE, 50 MG [Suspect]
     Active Substance: FLUVOXAMINE MALEATE
     Indication: OBSESSIVE-COMPULSIVE DISORDER
  2. CALCIUM W/ D [Concomitant]
  3. PROBIOTICS [Concomitant]
     Active Substance: PROBIOTICS NOS
  4. FLAX OIL [Concomitant]
  5. CRANBERRY. [Concomitant]
     Active Substance: CRANBERRY
  6. LEVOTHYROXIN [Concomitant]
     Active Substance: LEVOTHYROXINE
  7. MULTI VITAMIN [Concomitant]
     Active Substance: VITAMINS
  8. LUVOX [Concomitant]
     Active Substance: FLUVOXAMINE MALEATE
  9. D-3 [Concomitant]
     Active Substance: CHOLECALCIFEROL
  10. BUSPIRONE [Concomitant]
     Active Substance: BUSPIRONE HYDROCHLORIDE
  11. LOSARTAN HTCZ [Concomitant]
  12. B- COMPLEX [Concomitant]

REACTIONS (6)
  - Psoriasis [None]
  - Dyspnoea [None]
  - Rash [None]
  - Dysarthria [None]
  - Oropharyngeal pain [None]
  - Throat tightness [None]
